FAERS Safety Report 5244331-4 (Version None)
Quarter: 2007Q1

REPORT INFORMATION
  Report Type: 
  Country: None (occurrence: None)
  Receive Date: 20070222
  Receipt Date: 20070212
  Transmission Date: 20070707
  Serious: No
  Sender: FDA-Public Use
  Company Number: US-ELI_LILLY_AND_COMPANY-US200701002097

PATIENT
  Age: 71 Year
  Sex: Female
  Weight: 55.328 kg

DRUGS (7)
  1. FORTEO [Suspect]
     Indication: OSTEOPOROSIS
     Dosage: 20 UG, UNK
     Dates: start: 20061201
  2. EVISTA [Suspect]
     Dosage: 60 MG, UNK, TABLET
     Dates: start: 20061221
  3. KLONOPIN [Concomitant]
  4. LEVOTHYROXINE SODIUM [Concomitant]
  5. OXYCONTIN [Concomitant]
  6. PERCODAN                           /00090001/ [Concomitant]
  7. AMBIEN [Concomitant]

REACTIONS (1)
  - NO ADVERSE EFFECT [None]
